FAERS Safety Report 8307393-3 (Version None)
Quarter: 2012Q2

REPORT INFORMATION
  Report Type: 
  Country: None (occurrence: None)
  Receive Date: 20120419
  Receipt Date: 20090609
  Transmission Date: 20120825
  Serious: Yes (Hospitalization)
  Sender: FDA-Public Use
  Company Number: TCI2009A02097

PATIENT
  Age: 35 Year
  Sex: Male

DRUGS (7)
  1. ACTOS [Suspect]
     Indication: DIABETES MELLITUS
     Dosage: 15 MG (15 MG, 1 D) ORAL, DOSES FOR 28 DAYS AT 1 TIME (420 MG, 1 IN 1 D) ORAL
     Route: 048
     Dates: start: 20090601, end: 20090601
  2. GLUFAST (MITIGLINIDE CALCIUM) [Suspect]
     Dosage: ORAL, DOSES FOR 28 DAYS AT 1 TIME (1 IN 1 D) ORAL
     Route: 048
     Dates: start: 20090601, end: 20090601
  3. BASEN (VOGLIBOSE) [Suspect]
     Indication: PRODUCT USED FOR UNKNOWN INDICATION
     Dosage: ORAL, DOSES FOR 28 DAYS AT 1 TIME (1 IN 1 D) ORAL
     Route: 048
     Dates: start: 20090601, end: 20090601
  4. METFORMIN HYDROCHLORIDE [Suspect]
     Dosage: ORAL, DOSES FOR 28 DAYS AT 1 TIME (1 IN 1 D) ORAL
     Route: 048
     Dates: start: 20090601, end: 20090601
  5. ALLOPURINOL [Suspect]
     Dosage: ORAL, DOSES FOR 28 DAYS AT 1 TIME (1 IN 1 D) ORAL
     Route: 048
     Dates: start: 20090601, end: 20090601
  6. LIPITOR [Suspect]
     Dosage: ORAL, DOSES FOR 28 DAYS AT 1 TIME (1 IN 1 D) ORAL
     Route: 048
     Dates: start: 20090601, end: 20090601
  7. MICARDIS [Suspect]
     Dosage: ORAL, DOSES FOR 28 DAYS AT 1 TIME (1 IN 1 D) ORAL
     Route: 048
     Dates: start: 20090601, end: 20090601

REACTIONS (5)
  - SUICIDE ATTEMPT [None]
  - MULTIPLE DRUG OVERDOSE INTENTIONAL [None]
  - BLOOD CREATININE INCREASED [None]
  - GENERAL PHYSICAL HEALTH DETERIORATION [None]
  - DIALYSIS [None]
